FAERS Safety Report 9936838 (Version 1)
Quarter: 2014Q1

REPORT INFORMATION
  Report Type: Spontaneous
  Country: DE (occurrence: None)
  Receive Date: 20140110
  Receipt Date: 20140110
  Transmission Date: 20141002
  Serious: Yes (Other)
  Sender: FDA-Public Use
  Company Number: 2013-01841

PATIENT
  Age: 47 Year
  Sex: Male

DRUGS (1)
  1. LEVETIRACETAM [Suspect]
     Indication: PARTIAL SEIZURES
     Dosage: 3000 MG (1500 MG, 2 IN 1 D), ORAL
     Route: 048
     Dates: start: 20130502

REACTIONS (2)
  - Partial seizures [None]
  - Drug ineffective [None]
